FAERS Safety Report 6941229-8 (Version None)
Quarter: 2010Q3

REPORT INFORMATION
  Report Type: 
  Country: None (occurrence: None)
  Receive Date: 20100825
  Receipt Date: 20100709
  Transmission Date: 20110219
  Serious: No
  Sender: FDA-Public Use
  Company Number: US-BRISTOL-MYERS SQUIBB COMPANY-15184898

PATIENT
  Age: 59 Year
  Sex: Female
  Weight: 118 kg

DRUGS (14)
  1. ONGLYZA [Suspect]
  2. NOVOLOG [Concomitant]
     Dosage: NOVOLOG FLEX-PEN
  3. MENTAX [Concomitant]
     Indication: DIABETIC NEUROPATHY
  4. MAVIK [Concomitant]
     Indication: HYPERTENSION
  5. VERAPAMIL [Concomitant]
     Indication: MIGRAINE
  6. NEXIUM [Concomitant]
     Indication: GASTROOESOPHAGEAL REFLUX DISEASE
  7. ALLEGRA [Concomitant]
     Indication: HYPERSENSITIVITY
  8. IMITREX [Concomitant]
     Indication: MIGRAINE
  9. AMITRIPTYLINE HCL [Concomitant]
     Indication: HEADACHE
  10. NEURONTIN [Concomitant]
     Indication: NEURALGIA
  11. ESTROGEN [Concomitant]
  12. HYDROCHLOROTHIAZIDE [Concomitant]
  13. SYMBICORT [Concomitant]
  14. SUCRALFATE [Concomitant]

REACTIONS (2)
  - DRUG INTOLERANCE [None]
  - WEIGHT INCREASED [None]
